FAERS Safety Report 9690110 (Version 2)
Quarter: 2013Q4

REPORT INFORMATION
  Report Type: Spontaneous
  Country: US (occurrence: US)
  Receive Date: 20131115
  Receipt Date: 20131126
  Transmission Date: 20140711
  Serious: No
  Sender: FDA-Public Use
  Company Number: US-BAYER-2013-139093

PATIENT
  Age: 36 Year
  Sex: Male
  Weight: 79 kg

DRUGS (2)
  1. ALEVE TABLET [Suspect]
     Indication: DISCOMFORT
     Dosage: UNK
  2. ALEVE TABLET [Suspect]
     Indication: DISCOMFORT
     Dosage: 3 DF, UNK
     Route: 048
     Dates: start: 20131110

REACTIONS (4)
  - Chest discomfort [Not Recovered/Not Resolved]
  - Incorrect dose administered [None]
  - Nausea [Not Recovered/Not Resolved]
  - Off label use [None]
